FAERS Safety Report 7153255-7 (Version None)
Quarter: 2010Q4

REPORT INFORMATION
  Report Type: 
  Country: None (occurrence: None)
  Receive Date: 20101213
  Receipt Date: 20101129
  Transmission Date: 20110411
  Serious: Yes (Hospitalization, Other)
  Sender: FDA-Public Use
  Company Number: RU-ROCHE-742609

PATIENT
  Age: 24 Year
  Sex: Female

DRUGS (1)
  1. ISOTRETINOIN [Suspect]
     Route: 048
     Dates: start: 20100101, end: 20100201

REACTIONS (9)
  - ARTHRITIS [None]
  - BETA GLOBULIN INCREASED [None]
  - BLOOD ALBUMIN DECREASED [None]
  - DYSHIDROSIS [None]
  - ERYTHEMA NODOSUM [None]
  - IMMUNOGLOBULINS INCREASED [None]
  - PLATELET COUNT INCREASED [None]
  - STREPTOCOCCUS TEST POSITIVE [None]
  - SYNOVITIS [None]
